FAERS Safety Report 18576206 (Version 4)
Quarter: 2025Q1

REPORT INFORMATION
  Report Type: Spontaneous
  Country: IT (occurrence: IT)
  Receive Date: 20201203
  Receipt Date: 20250108
  Transmission Date: 20250408
  Serious: Yes (Hospitalization, Other)
  Sender: MYLAN
  Company Number: IT-PFM-2020-20279

PATIENT
  Age: 67 Year
  Sex: Male

DRUGS (15)
  1. LEVETIRACETAM [Suspect]
     Active Substance: LEVETIRACETAM
     Indication: COVID-19
     Route: 065
  2. AZITHROMYCIN [Suspect]
     Active Substance: AZITHROMYCIN
     Indication: COVID-19 pneumonia
  3. AZITHROMYCIN [Suspect]
     Active Substance: AZITHROMYCIN
     Route: 065
  4. CEFTRIAXONE [Suspect]
     Active Substance: CEFTRIAXONE
     Indication: COVID-19 pneumonia
     Route: 065
  5. LEVOTHYROXINE [Suspect]
     Active Substance: LEVOTHYROXINE
     Indication: Hypopituitarism
     Dosage: 100 MICROGRAM, QD (100 ?G, QD (1/DAY))
     Route: 065
  6. HYDROXYCHLOROQUINE [Suspect]
     Active Substance: HYDROXYCHLOROQUINE
     Indication: COVID-19 pneumonia
     Route: 065
  7. PASIREOTIDE [Interacting]
     Active Substance: PASIREOTIDE
     Indication: Pituitary-dependent Cushing^s syndrome
     Dosage: 40 MILLIGRAM, MONTHLY (40 MILLIGRAM, QM)
     Route: 030
  8. PASIREOTIDE [Interacting]
     Active Substance: PASIREOTIDE
     Dosage: 40 MILLIGRAM, MONTHLY
     Route: 058
  9. ASPIRIN [Suspect]
     Active Substance: ASPIRIN
     Indication: Product used for unknown indication
     Route: 065
  10. METYRAPONE [Suspect]
     Active Substance: METYRAPONE
     Indication: Pituitary-dependent Cushing^s syndrome
     Dosage: 500 MILLIGRAM, QD (500 MG, QD (1/DAY))
     Route: 065
     Dates: end: 2019
  11. METYRAPONE [Suspect]
     Active Substance: METYRAPONE
     Route: 065
     Dates: start: 202001
  12. CABERGOLINE [Suspect]
     Active Substance: CABERGOLINE
     Indication: Cushing^s syndrome
     Dosage: 0.5 MILLIGRAM, QD (0.5 MG, QD (1/DAY))
     Route: 065
  13. SITAGLIPTIN [Suspect]
     Active Substance: SITAGLIPTIN
     Indication: Diabetes mellitus
     Dosage: 50 MILLIGRAM, QD (50 MG, QD (1/DAY))
     Route: 065
     Dates: start: 201806
  14. VITAMIN D [Concomitant]
     Active Substance: VITAMIN D NOS
     Indication: Product used for unknown indication
     Route: 065
  15. METFORMIN [Concomitant]
     Active Substance: METFORMIN HYDROCHLORIDE
     Indication: Diabetes mellitus
     Route: 065
     Dates: start: 201806

REACTIONS (10)
  - Hypotension [Recovered/Resolved]
  - Hyperkalaemia [Unknown]
  - Adrenal insufficiency [Unknown]
  - Hypoglycaemia [Recovered/Resolved]
  - Drug interaction [Unknown]
  - COVID-19 [Recovered/Resolved]
  - Deep vein thrombosis [Unknown]
  - Product use in unapproved indication [Unknown]
  - Product use issue [Unknown]
  - Off label use [Unknown]

NARRATIVE: CASE EVENT DATE: 20200201
